FAERS Safety Report 9936936 (Version 1)
Quarter: 2014Q1

REPORT INFORMATION
  Report Type: Spontaneous
  Country: US (occurrence: None)
  Receive Date: 20140115
  Receipt Date: 20140115
  Transmission Date: 20141002
  Serious: No
  Sender: FDA-Public Use
  Company Number: 2013US002621

PATIENT
  Age: 62 Year
  Sex: Male
  Weight: 99 kg

DRUGS (5)
  1. ICLUSIG (PONATINIB) TABLET, 45MG [Suspect]
     Indication: CHRONIC MYELOID LEUKAEMIA
     Route: 048
     Dates: start: 20130402, end: 2013
  2. VITAMIN B 12 NOS) (VITAMIN B12 NOS) [Concomitant]
  3. IBUPROFEN  (IBUPROFEN) [Concomitant]
  4. MULTIVITAMIN (VITAMINS NOS) [Concomitant]
  5. OMEGA-3 FATTY ACIDS (OMEGA-3 FATTY ACIDS) [Concomitant]

REACTIONS (1)
  - Constipation [None]
